FAERS Safety Report 4672563-2 (Version None)
Quarter: 2005Q2

REPORT INFORMATION
  Report Type: 
  Country: None (occurrence: None)
  Receive Date: 20050524
  Receipt Date: 20050516
  Transmission Date: 20051028
  Serious: Yes (Other)
  Sender: FDA-Public Use
  Company Number: US-GLAXOSMITHKLINE-A0558778A

PATIENT
  Age: 29 Year
  Sex: Male

DRUGS (2)
  1. LAMICTAL [Suspect]
     Route: 048
     Dates: start: 20020101
  2. TOPAMAX [Concomitant]

REACTIONS (3)
  - COMPLEX PARTIAL SEIZURES [None]
  - CONVULSION [None]
  - FATIGUE [None]
